FAERS Safety Report 24566496 (Version 1)
Quarter: 2024Q4

REPORT INFORMATION
  Report Type: Spontaneous
  Country: AT (occurrence: AT)
  Receive Date: 20241030
  Receipt Date: 20241030
  Transmission Date: 20250115
  Serious: Yes (Congenital Anomaly, Other)
  Sender: CIPLA
  Company Number: AT-CIPLA LTD.-2024AT12534

PATIENT

DRUGS (4)
  1. ZIDOVUDINE [Suspect]
     Active Substance: ZIDOVUDINE
     Dosage: UNK
     Route: 064
  2. LOPINAVIR\RITONAVIR [Suspect]
     Active Substance: LOPINAVIR\RITONAVIR
     Dosage: UNK
     Route: 064
  3. DARUNAVIR [Suspect]
     Active Substance: DARUNAVIR
     Dosage: 1200 MG/DAY, UNK
     Route: 064
  4. FUZEON [Suspect]
     Active Substance: ENFUVIRTIDE
     Dosage: 800 MG/DAY, UNK
     Route: 064

REACTIONS (2)
  - Plagiocephaly [Unknown]
  - Foetal exposure during pregnancy [Unknown]
